FAERS Safety Report 23306040 (Version 3)
Quarter: 2024Q3

REPORT INFORMATION
  Report Type: Spontaneous
  Country: US (occurrence: US)
  Receive Date: 20231218
  Receipt Date: 20240717
  Transmission Date: 20241016
  Serious: Yes (Hospitalization, Other)
  Sender: BRISTOL MYERS SQUIBB
  Company Number: US-BRISTOL-MYERS SQUIBB COMPANY-2023-181825

PATIENT
  Age: 75 Year
  Sex: Female

DRUGS (2)
  1. ORENCIA [Suspect]
     Active Substance: ABATACEPT
     Indication: Rheumatoid arthritis
     Route: 058
     Dates: start: 202303
  2. ORENCIA [Suspect]
     Active Substance: ABATACEPT
     Route: 058

REACTIONS (6)
  - Joint lock [Unknown]
  - Arthralgia [Not Recovered/Not Resolved]
  - Pneumonia [Unknown]
  - Joint swelling [Unknown]
  - Pain [Unknown]
  - Gait inability [Unknown]

NARRATIVE: CASE EVENT DATE: 20230101
